FAERS Safety Report 5235141-2 (Version None)
Quarter: 2007Q1

REPORT INFORMATION
  Report Type: 
  Country: None (occurrence: None)
  Receive Date: 20070207
  Receipt Date: 20070123
  Transmission Date: 20070707
  Serious: Yes (Other)
  Sender: FDA-Public Use
  Company Number: B0456796A

PATIENT
  Age: 38 Year
  Sex: Female

DRUGS (7)
  1. SALBUTAMOL SULPHATE (FORMULATION UNKNOWN) (GENERIC) (ALBUTEROL SULFATE [Suspect]
     Indication: ASTHMA
  2. PREDNISOLONE [Suspect]
     Indication: ASTHMA
  3. FUROSEMIDE [Suspect]
     Dosage: 80MG / TWICE PER DAY
  4. ASPIRIN [Suspect]
     Dosage: 75 MG
  5. ENOXAPARIN (ENOXAPARIN) (FORMULATION UNKNOWN) [Suspect]
     Dosage: 20 MG
  6. VENTOLIN [Suspect]
     Dosage: NEBULIZER
  7. BRONCHIDILATOR INHALER (BRONCHODILATOR) [Suspect]
     Dosage: INHALED
     Route: 055

REACTIONS (20)
  - ANXIETY [None]
  - BLOOD PRESSURE DECREASED [None]
  - BUNDLE BRANCH BLOCK [None]
  - CAESAREAN SECTION [None]
  - CARDIOMEGALY [None]
  - CHEST PAIN [None]
  - DILATATION VENTRICULAR [None]
  - DRUG EXPOSURE DURING PREGNANCY [None]
  - ELECTROCARDIOGRAM QRS COMPLEX PROLONGED [None]
  - EMOTIONAL DISTRESS [None]
  - HEART TRANSPLANT [None]
  - INTRACARDIAC THROMBUS [None]
  - MITRAL VALVE INCOMPETENCE [None]
  - OXYGEN SATURATION DECREASED [None]
  - PERIPARTUM CARDIOMYOPATHY [None]
  - PREMATURE BABY [None]
  - QRS AXIS ABNORMAL [None]
  - TACHYCARDIA [None]
  - TRICUSPID VALVE INCOMPETENCE [None]
  - VENTRICULAR HYPOKINESIA [None]
